FAERS Safety Report 5504778-5 (Version None)
Quarter: 2007Q4

REPORT INFORMATION
  Report Type: 
  Country: None (occurrence: None)
  Receive Date: 20071031
  Receipt Date: 20071031
  Transmission Date: 20080405
  Serious: No
  Sender: FDA-Public Use
  Company Number: None

PATIENT
  Age: 41 Year
  Sex: Male

DRUGS (1)
  1. TACROLIMUS [Suspect]
     Indication: CHRONIC MYELOID LEUKAEMIA
     Dates: start: 20070724

REACTIONS (3)
  - FASCIITIS [None]
  - NEUROPATHY PERIPHERAL [None]
  - SKIN HYPERPIGMENTATION [None]
